FAERS Safety Report 6829842-X (Version None)
Quarter: 2010Q3

REPORT INFORMATION
  Report Type: 
  Country: None (occurrence: None)
  Receive Date: 20100710
  Receipt Date: 20100628
  Transmission Date: 20110219
  Serious: Yes (Other)
  Sender: FDA-Public Use
  Company Number: US-ELI_LILLY_AND_COMPANY-US201007000548

PATIENT
  Sex: Female

DRUGS (5)
  1. FORTEO [Suspect]
     Indication: OSTEOPOROSIS
     Dosage: 20 UG, DAILY (1/D)
     Route: 065
     Dates: start: 20090901
  2. LEVOTHYROXINE SODIUM [Concomitant]
     Dosage: UNK, UNKNOWN
     Route: 065
  3. POTASSIUM CITRATE [Concomitant]
     Dosage: UNK, UNKNOWN
     Route: 065
  4. CALCIUM CARBONATE [Concomitant]
     Dosage: 600 MG, UNKNOWN
     Route: 065
  5. VITAMIN D [Concomitant]
     Dosage: UNK, UNKNOWN
     Route: 065

REACTIONS (3)
  - BLOOD CHOLESTEROL INCREASED [None]
  - CARDIAC STRESS TEST [None]
  - CHEST PAIN [None]
